FAERS Safety Report 5275281-5 (Version None)
Quarter: 2007Q1

REPORT INFORMATION
  Report Type: 
  Country: None (occurrence: None)
  Receive Date: 20061213
  Receipt Date: 20050825
  Transmission Date: 20070707
  Serious: No
  Sender: FDA-Public Use
  Company Number: 2005UW12667

PATIENT
  Age: 26 Year
  Sex: Female
  Weight: 54.431 kg

DRUGS (4)
  1. SEROQUEL [Suspect]
     Dates: start: 20050825
  2. KLONOPIN [Concomitant]
  3. WELLBUTRIN [Concomitant]
  4. ANTABUSE [Concomitant]

REACTIONS (4)
  - HEART RATE INCREASED [None]
  - LOSS OF CONSCIOUSNESS [None]
  - MUSCULOSKELETAL CHEST PAIN [None]
  - VISION BLURRED [None]
